FAERS Safety Report 4833197-X (Version None)
Quarter: 2005Q4

REPORT INFORMATION
  Report Type: 
  Country: None (occurrence: None)
  Receive Date: 20051121
  Receipt Date: 20051110
  Transmission Date: 20060501
  Serious: Yes (Other)
  Sender: FDA-Public Use
  Company Number: US-JNJFOC-20051103271

PATIENT
  Sex: Female

DRUGS (3)
  1. DURAGESIC-100 [Suspect]
     Route: 062
  2. NPH INSULIN [Concomitant]
     Dosage: INSULIN, NPH, 25 UNITS NPH EVERY 24 HOURS; 15 UNITS IN MORNING, 10 UNITS NPH AT DINNERTIME.
     Route: 058
  3. REGULAR INSULIN [Concomitant]

REACTIONS (3)
  - DIZZINESS [None]
  - FALL [None]
  - UPPER LIMB FRACTURE [None]
